FAERS Safety Report 10639793 (Version 2)
Quarter: 2014Q4

REPORT INFORMATION
  Report Type: Spontaneous
  Country: US (occurrence: US)
  Receive Date: 20141209
  Receipt Date: 20141209
  Transmission Date: 20150529
  Serious: Yes (Death)
  Sender: FDA-Public Use
  Company Number: US-JNJCP-30000254837

PATIENT
  Age: 45 Year
  Sex: Female

DRUGS (2)
  1. SHOWER TO SHOWER [Suspect]
     Active Substance: TALC
     Route: 061
     Dates: start: 1985, end: 20111124
  2. JOHNSONS BABY PRODUCTS [Suspect]
     Active Substance: UNSPECIFIED INGREDIENT
     Route: 061
     Dates: start: 1985, end: 20111124

REACTIONS (1)
  - Ovarian cancer [Fatal]

NARRATIVE: CASE EVENT DATE: 201106
